FAERS Safety Report 19742748 (Version 1)
Quarter: 2021Q3

REPORT INFORMATION
  Report Type: Spontaneous
  Country: US (occurrence: US)
  Receive Date: 20210823
  Receipt Date: 20210823
  Transmission Date: 20211014
  Serious: Yes (Other)
  Sender: FDA-Public Use
  Company Number: None

PATIENT
  Age: 53 Year
  Sex: Female
  Weight: 89.1 kg

DRUGS (9)
  1. LISINOPRIL. [Concomitant]
     Active Substance: LISINOPRIL
  2. TRULICITY [Concomitant]
     Active Substance: DULAGLUTIDE
  3. TRULICITY [Suspect]
     Active Substance: DULAGLUTIDE
     Indication: TYPE 2 DIABETES MELLITUS
     Route: 058
     Dates: start: 20210807, end: 20210814
  4. LANTUS SOLOSTAR [Concomitant]
     Active Substance: INSULIN GLARGINE
  5. ATORVASTATIN [Concomitant]
     Active Substance: ATORVASTATIN
  6. PANTOPRAZOLOL [Concomitant]
  7. ZEBETA [Concomitant]
     Active Substance: BISOPROLOL FUMARATE
  8. ONADESTRON [Concomitant]
  9. LYRICA [Concomitant]
     Active Substance: PREGABALIN

REACTIONS (8)
  - Hypophagia [None]
  - Abdominal pain [None]
  - Insomnia [None]
  - Pain [None]
  - Diarrhoea [None]
  - Vomiting [None]
  - Nausea [None]
  - Back pain [None]

NARRATIVE: CASE EVENT DATE: 20210810
